FAERS Safety Report 6892274-2 (Version None)
Quarter: 2010Q3

REPORT INFORMATION
  Report Type: 
  Country: None (occurrence: None)
  Receive Date: 20100731
  Receipt Date: 20080408
  Transmission Date: 20110219
  Serious: Yes (Other)
  Sender: FDA-Public Use
  Company Number: US-PFIZER INC-2008011068

PATIENT
  Sex: Male
  Weight: 111.1 kg

DRUGS (7)
  1. AMLODIPINE [Suspect]
     Indication: HYPERTENSION
     Dosage: QD: EVERYDAY
     Route: 048
     Dates: start: 20071101
  2. NORVASC [Suspect]
     Dates: start: 20020613
  3. LIPITOR [Concomitant]
     Indication: BLOOD CHOLESTEROL INCREASED
  4. LABETALOL HCL [Concomitant]
  5. SPIRONOLACTONE [Concomitant]
  6. DOXAZOSIN [Concomitant]
  7. MINOXIDIL [Concomitant]
     Indication: HYPERTENSION

REACTIONS (1)
  - BLOOD PRESSURE SYSTOLIC INCREASED [None]
